FAERS Safety Report 9710879 (Version 2)
Quarter: 2013Q4

REPORT INFORMATION
  Report Type: Spontaneous
  Country: US (occurrence: US)
  Receive Date: 20131126
  Receipt Date: 20131126
  Transmission Date: 20140711
  Serious: No
  Sender: FDA-Public Use
  Company Number: US201205004808

PATIENT
  Age: 63 Year
  Sex: Male
  Weight: 162.35 kg

DRUGS (7)
  1. BYDUREON [Suspect]
     Indication: TYPE 2 DIABETES MELLITUS
     Route: 058
     Dates: start: 201301
  2. BYETTA [Suspect]
     Indication: TYPE 2 DIABETES MELLITUS
     Route: 058
     Dates: start: 201301
  3. AMARYL [Concomitant]
     Indication: TYPE 2 DIABETES MELLITUS
     Route: 048
  4. BROMOCRIPTINE MESYLATE [Concomitant]
     Indication: TYPE 2 DIABETES MELLITUS
     Route: 048
  5. MINOXIDIL [Concomitant]
  6. LIPITOR [Concomitant]
  7. WELCHOL [Concomitant]

REACTIONS (5)
  - Blood glucose increased [Recovered/Resolved]
  - Off label use [Not Recovered/Not Resolved]
  - Increased appetite [Recovered/Resolved]
  - Prescribed overdose [Not Recovered/Not Resolved]
  - Injection site nodule [Not Recovered/Not Resolved]
